FAERS Safety Report 10159548 (Version 1)
Quarter: 2014Q2

REPORT INFORMATION
  Report Type: Spontaneous
  Country: US (occurrence: None)
  Receive Date: 20140507
  Receipt Date: 20140507
  Transmission Date: 20141212
  Serious: Yes (Life-Threatening, Hospitalization)
  Sender: FDA-Public Use
  Company Number: None

PATIENT
  Age: 51 Year
  Sex: Female
  Weight: 61.69 kg

DRUGS (1)
  1. OMEPRAZOLE [Suspect]
     Indication: ABDOMINAL PAIN UPPER
     Route: 048
     Dates: start: 20131101, end: 20140425

REACTIONS (10)
  - Hypotension [None]
  - Haemoglobin decreased [None]
  - Vitamin B12 decreased [None]
  - Dyspnoea [None]
  - Confusional state [None]
  - Dizziness [None]
  - Paraesthesia [None]
  - Incorrect drug administration duration [None]
  - Nerve injury [None]
  - Pyelonephritis acute [None]
